FAERS Safety Report 5144530-6 (Version None)
Quarter: 2006Q4

REPORT INFORMATION
  Report Type: 
  Country: None (occurrence: None)
  Receive Date: 20061030
  Receipt Date: 20061018
  Transmission Date: 20070319
  Serious: Yes (Hospitalization, Other)
  Sender: FDA-Public Use
  Company Number: 2006127753

PATIENT
  Age: 60 Year
  Sex: Male

DRUGS (3)
  1. LIPITOR [Suspect]
     Dates: start: 20020101
  2. BYETTA [Concomitant]
  3. .. [Concomitant]

REACTIONS (5)
  - BILE DUCT STENOSIS [None]
  - DYSPEPSIA [None]
  - ERUCTATION [None]
  - HEPATOBILIARY SCAN ABNORMAL [None]
  - MURPHY'S SIGN POSITIVE [None]
